FAERS Safety Report 14304564 (Version 1)
Quarter: 2017Q4

REPORT INFORMATION
  Report Type: Spontaneous
  Country: JP (occurrence: JP)
  Receive Date: 20171219
  Receipt Date: 20171219
  Transmission Date: 20180321
  Serious: Yes (Death, Life-Threatening, Other)
  Sender: FDA-Public Use
  Company Number: JP-OTSUKA-JP-2011-11260

PATIENT
  Age: 76 Year
  Sex: Male
  Weight: 50 kg

DRUGS (26)
  1. RINDERON V [Concomitant]
     Active Substance: BETAMETHASONE VALERATE
     Indication: MALAISE
     Dosage: 2 MG, QD
     Dates: start: 20110524, end: 20110807
  2. THYRADIN [Concomitant]
     Active Substance: LEVOTHYROXINE
     Indication: HYPOTHYROIDISM
     Dosage: 100 ?G, QD
     Dates: start: 20110622, end: 20110802
  3. MILMAG [Concomitant]
     Active Substance: MAGNESIUM HYDROXIDE
     Indication: CONSTIPATION
     Dosage: 10 ML, TID
     Dates: start: 20110605, end: 20110803
  4. KETAMINE [Concomitant]
     Active Substance: KETAMINE
     Dosage: INJECTION
     Dates: start: 20110627, end: 20110809
  5. CALFINA [Concomitant]
     Active Substance: ALFACALCIDOL
     Indication: HYPOPARATHYROIDISM
     Dosage: 1 ?G, QD
     Dates: start: 20110607, end: 20110805
  6. KENTAN [Concomitant]
     Active Substance: LOXOPROFEN SODIUM
     Indication: CANCER PAIN
     Dosage: 600 MG, TID
     Dates: start: 20110617, end: 20110804
  7. MIDAZOLAM [Concomitant]
     Active Substance: MIDAZOLAM HYDROCHLORIDE
     Indication: INSOMNIA
     Dosage: 10 MG, QD
     Route: 042
     Dates: start: 20110627, end: 20110807
  8. LACTEC [Concomitant]
     Active Substance: CALCIUM CHLORIDE ANHYDROUS\POTASSIUM CHLORIDE\SODIUM CHLORIDE\SODIUM LACTATE
     Indication: ELECTROLYTE SUBSTITUTION THERAPY
  9. SOLDEM 1 [Concomitant]
     Active Substance: DEXTROSE\SODIUM CHLORIDE\SODIUM LACTATE
     Indication: RENAL FAILURE
     Dosage: 200 ML, QD
     Route: 041
     Dates: start: 20110726, end: 20110805
  10. VITAMEDIN [Concomitant]
     Active Substance: CYANOCOBALAMIN\PYRIDOXINE HYDROCHLORIDE\THIAMINE
     Indication: VITAMIN SUPPLEMENTATION
  11. MORPHINE HCL [Concomitant]
     Active Substance: MORPHINE HYDROCHLORIDE
     Dosage: INJECTION
     Dates: start: 20110624, end: 20110804
  12. MORPHINE HYDROCHLORIDE HYDRATE [Concomitant]
     Active Substance: MORPHINE HYDROCHLORIDE
     Indication: CANCER PAIN
     Dosage: 0.5 MG/HR, DAILY DOSE
     Route: 058
     Dates: start: 20110624, end: 20110809
  13. ABILIFY [Suspect]
     Active Substance: ARIPIPRAZOLE
     Indication: DELIRIUM
     Dosage: 3 MG, QD
     Route: 048
     Dates: start: 20110719, end: 20110726
  14. ZOSYN [Concomitant]
     Active Substance: PIPERACILLIN SODIUM\TAZOBACTAM SODIUM
     Indication: PNEUMONIA
     Dosage: 4.5 G, BID
     Route: 042
     Dates: start: 20110703, end: 20110726
  15. ALPRAZOLAM. [Concomitant]
     Active Substance: ALPRAZOLAM
     Indication: INSOMNIA
     Dosage: 0.4 MG, QD
     Dates: start: 20110716, end: 20110804
  16. KETALAR [Concomitant]
     Active Substance: KETAMINE HYDROCHLORIDE
     Indication: CANCER PAIN
     Dosage: 2.5 MG/HR, DAILY DOSE
     Route: 058
     Dates: start: 20110627, end: 20110809
  17. LACTEC [Concomitant]
     Active Substance: CALCIUM CHLORIDE ANHYDROUS\POTASSIUM CHLORIDE\SODIUM CHLORIDE\SODIUM LACTATE
     Indication: RENAL FAILURE
     Dosage: 500 ML, QD
     Route: 041
     Dates: start: 20110704, end: 20110809
  18. METILON [Concomitant]
     Active Substance: METAMIZOLE SODIUM
     Indication: PNEUMONIA
     Dosage: 250 MG, BID
     Route: 041
     Dates: start: 20110709, end: 20110809
  19. LAC-B [Concomitant]
     Active Substance: BIFIDOBACTERIUM SPP.
     Dosage: ORAL POWDER
     Route: 048
  20. MUCODYNE [Concomitant]
     Active Substance: CARBOCYSTEINE
     Indication: BRONCHITIS CHRONIC
     Dosage: 500 MG, TID
     Dates: start: 20110607, end: 20110805
  21. VITAMEDIN [Concomitant]
     Active Substance: CYANOCOBALAMIN\PYRIDOXINE HYDROCHLORIDE\THIAMINE
     Indication: MALAISE
     Dosage: 1 DF, QD
     Route: 041
     Dates: start: 20110707, end: 20110805
  22. ALPRAZOLAM. [Concomitant]
     Active Substance: ALPRAZOLAM
     Dosage: TABLET
     Dates: start: 20110716, end: 20110804
  23. LOXOPROFEN [Concomitant]
     Active Substance: LOXOPROFEN
     Dosage: GRANULES
     Dates: start: 20110617, end: 20110804
  24. VITAMIN B 1-6-12 [Concomitant]
     Active Substance: CYANOCOBALAMIN\PYRIDOXINE\THIAMINE
     Dosage: INJECTION
     Dates: start: 20110707, end: 20110805
  25. MAINTENANCE MEDIUM [Concomitant]
     Dosage: INJECTION  SOLDEM
  26. LANSOPRAZOLE. [Concomitant]
     Active Substance: LANSOPRAZOLE

REACTIONS (2)
  - Granulocytopenia [Not Recovered/Not Resolved]
  - Pancytopenia [Not Recovered/Not Resolved]

NARRATIVE: CASE EVENT DATE: 20110726
